FAERS Safety Report 24062200 (Version 3)
Quarter: 2025Q3

REPORT INFORMATION
  Report Type: Spontaneous
  Country: EU (occurrence: EU)
  Receive Date: 20240708
  Receipt Date: 20250717
  Transmission Date: 20251020
  Serious: Yes (Hospitalization)
  Sender: BIOMARIN
  Company Number: EU-SA-SAC20240628000656

PATIENT
  Age: 6 Year
  Sex: Male

DRUGS (6)
  1. LARONIDASE [Suspect]
     Active Substance: LARONIDASE
     Indication: Mucopolysaccharidosis I
     Dosage: 2000 U, QW
     Dates: start: 20240624
  2. LARONIDASE [Suspect]
     Active Substance: LARONIDASE
     Dosage: 2000 U, QW
     Dates: start: 20221114, end: 2024
  3. LARONIDASE [Suspect]
     Active Substance: LARONIDASE
  4. ACETAMINOPHEN [Concomitant]
     Active Substance: ACETAMINOPHEN
     Indication: Product used for unknown indication
     Dosage: 15 MG, QW
  5. ACETAMINOPHEN [Concomitant]
     Active Substance: ACETAMINOPHEN
  6. CETIRIZINE [Concomitant]
     Active Substance: CETIRIZINE HYDROCHLORIDE
     Indication: Product used for unknown indication
     Dosage: 10 MG, QW

REACTIONS (5)
  - Anxiety [Unknown]
  - Obstructive sleep apnoea syndrome [Recovering/Resolving]
  - Adenotonsillectomy [Unknown]
  - Viral infection [Not Recovered/Not Resolved]
  - Diarrhoea [Not Recovered/Not Resolved]

NARRATIVE: CASE EVENT DATE: 20240101
